FAERS Safety Report 9628859 (Version 1)
Quarter: 2013Q4

REPORT INFORMATION
  Report Type: Report from Study
  Country: GB (occurrence: GB)
  Receive Date: 20131017
  Receipt Date: 20131017
  Transmission Date: 20140711
  Serious: Yes (Hospitalization)
  Sender: FDA-Public Use
  Company Number: GB-JNJFOC-20131007368

PATIENT
  Age: 59 Year
  Sex: Female
  Weight: 101 kg

DRUGS (11)
  1. USTEKINUMAB [Suspect]
     Indication: PSORIASIS
     Route: 058
     Dates: start: 20120620
  2. PREGABALIN [Suspect]
     Indication: PRODUCT USED FOR UNKNOWN INDICATION
     Route: 065
     Dates: start: 20130312, end: 20130720
  3. AMITRIPTYLINE [Concomitant]
     Route: 065
     Dates: start: 20080615
  4. SERETIDE [Concomitant]
     Route: 065
     Dates: start: 20080615
  5. ELLESTE-SOLO [Concomitant]
     Route: 065
     Dates: start: 20070615
  6. VENTOLIN [Concomitant]
     Route: 065
     Dates: start: 20040615
  7. CETRIZINE [Concomitant]
     Route: 065
  8. CITALOPRAM [Concomitant]
     Route: 065
     Dates: start: 20090615
  9. CLONAZEPAM [Concomitant]
     Route: 065
     Dates: start: 20120124
  10. HYDROXYZINE [Concomitant]
     Route: 065
     Dates: start: 20130720
  11. WARFARIN [Concomitant]
     Route: 065
     Dates: start: 20130721

REACTIONS (3)
  - Deep vein thrombosis [Recovered/Resolved]
  - Drug eruption [Recovered/Resolved]
  - Local swelling [Unknown]
